FAERS Safety Report 20770146 (Version 3)
Quarter: 2023Q1

REPORT INFORMATION
  Report Type: Report from Study
  Country: GB (occurrence: GB)
  Receive Date: 20220429
  Receipt Date: 20230109
  Transmission Date: 20230418
  Serious: Yes (Other)
  Sender: FDA-Public Use
  Company Number: GB-NOVARTISPH-NVSC2022GB094769

PATIENT
  Sex: Male

DRUGS (3)
  1. ASCIMINIB [Suspect]
     Active Substance: ASCIMINIB
     Indication: Chronic myeloid leukaemia
     Dosage: 200 MG, BID (STRENGTH: 40 MG)
     Route: 065
  2. ASCIMINIB [Suspect]
     Active Substance: ASCIMINIB
     Dosage: 160 MG, BID
     Route: 065
  3. ASCIMINIB [Suspect]
     Active Substance: ASCIMINIB
     Dosage: 200 MG, BID
     Route: 065
     Dates: start: 20201021

REACTIONS (1)
  - Renal impairment [Unknown]
